FAERS Safety Report 18959799 (Version 2)
Quarter: 2021Q2

REPORT INFORMATION
  Report Type: Spontaneous
  Country: PL (occurrence: PL)
  Receive Date: 20210303
  Receipt Date: 20210409
  Transmission Date: 20210717
  Serious: Yes (Other)
  Sender: FDA-Public Use
  Company Number: PL-AMGEN-POLSP2021028758

PATIENT
  Age: 66 Year
  Sex: Female

DRUGS (7)
  1. 5 FU [Concomitant]
     Active Substance: FLUOROURACIL
     Indication: RECTAL CANCER METASTATIC
     Dosage: UNK
     Dates: start: 20181006
  2. FOLINIC ACID [Concomitant]
     Active Substance: LEUCOVORIN
     Indication: RECTAL CANCER METASTATIC
     Dosage: UNK
     Dates: start: 20181006
  3. OXALIPLATIN. [Concomitant]
     Active Substance: OXALIPLATIN
     Indication: RECTAL CANCER METASTATIC
     Dosage: UNK
     Dates: start: 20181006, end: 20190419
  4. VECTIBIX [Suspect]
     Active Substance: PANITUMUMAB
     Dosage: UNK UNK, Q3WK (EVERY 21 DAYS)
     Route: 065
     Dates: start: 2019
  5. VECTIBIX [Suspect]
     Active Substance: PANITUMUMAB
     Indication: RECTAL CANCER METASTATIC
     Dosage: UNK
     Route: 065
     Dates: start: 20181006
  6. CALCIUM FOLINATE [Concomitant]
     Active Substance: LEUCOVORIN CALCIUM
     Indication: RECTAL CANCER METASTATIC
     Dosage: UNK
     Dates: start: 20190516
  7. VECTIBIX [Suspect]
     Active Substance: PANITUMUMAB
     Dosage: UNK (AS MONOTHERAPY)
     Route: 065
     Dates: start: 20201210, end: 20210111

REACTIONS (21)
  - Blepharitis [Unknown]
  - Nausea [Unknown]
  - Thrombocytopenia [Unknown]
  - Alanine aminotransferase increased [Unknown]
  - Spondylolisthesis [Unknown]
  - Conjunctivitis [Unknown]
  - Rash [Unknown]
  - Osteosclerosis [Unknown]
  - Malaise [Unknown]
  - Off label use [Unknown]
  - Rash papular [Unknown]
  - Rash pustular [Unknown]
  - Polyneuropathy [Unknown]
  - Radius fracture [Recovered/Resolved]
  - Metastases to liver [Unknown]
  - Dermatitis [Unknown]
  - Paronychia [Unknown]
  - Skin toxicity [Unknown]
  - Hypomagnesaemia [Unknown]
  - Hypokalaemia [Unknown]
  - Vomiting [Unknown]

NARRATIVE: CASE EVENT DATE: 20181111
